FAERS Safety Report 16884612 (Version 1)
Quarter: 2019Q4

REPORT INFORMATION
  Report Type: Spontaneous
  Country: US (occurrence: US)
  Receive Date: 20191003
  Receipt Date: 20191003
  Transmission Date: 20200122
  Serious: Yes (Hospitalization, Disabling)
  Sender: FDA-Public Use
  Company Number: None

PATIENT
  Age: 23 Year
  Sex: Female
  Weight: 67.5 kg

DRUGS (3)
  1. MINOCYCLINE [Suspect]
     Active Substance: MINOCYCLINE HYDROCHLORIDE
     Indication: ROSACEA
     Dosage: ?          QUANTITY:1 CAPSULE(S);?
     Route: 048
     Dates: start: 20190808, end: 20190925
  2. SERTRALINE [Concomitant]
     Active Substance: SERTRALINE HYDROCHLORIDE
  3. CLARITIN [Concomitant]
     Active Substance: LORATADINE

REACTIONS (10)
  - Stress [None]
  - CSF pressure increased [None]
  - Neck pain [None]
  - Papilloedema [None]
  - Fatigue [None]
  - Diplopia [None]
  - Intracranial pressure increased [None]
  - Impaired work ability [None]
  - Idiopathic intracranial hypertension [None]
  - Visual impairment [None]

NARRATIVE: CASE EVENT DATE: 20190927
